FAERS Safety Report 8240847-7 (Version None)
Quarter: 2012Q1

REPORT INFORMATION
  Report Type: 
  Country: None (occurrence: None)
  Receive Date: 20120328
  Receipt Date: 20120320
  Transmission Date: 20120608
  Serious: Yes (Other)
  Sender: FDA-Public Use
  Company Number: US-ASTRAZENECA-2012SE19223

PATIENT
  Age: 47 Year
  Sex: Male
  Weight: 133.8 kg

DRUGS (10)
  1. LITHIUM CARBONATE [Concomitant]
  2. SEROQUEL XR [Suspect]
     Indication: SCHIZOPHRENIA
     Route: 048
  3. SEROQUEL XR [Suspect]
     Route: 048
     Dates: start: 20111201, end: 20120301
  4. OXYCONTIN [Suspect]
     Indication: BACK PAIN
     Dosage: THREE TIMES A DAY, IN THE MORNING, AFTERNOON AND NIGHT
     Dates: start: 19920101
  5. SEROQUEL XR [Suspect]
     Indication: BIPOLAR DISORDER
     Route: 048
  6. SEROQUEL XR [Suspect]
     Indication: BIPOLAR I DISORDER
     Route: 048
  7. SEROQUEL XR [Suspect]
     Route: 048
     Dates: start: 20111201, end: 20120301
  8. SEROQUEL XR [Suspect]
     Route: 048
     Dates: start: 20111201, end: 20120301
  9. ABILIFY [Concomitant]
     Dates: start: 19940101
  10. ACIPHEX [Concomitant]

REACTIONS (5)
  - CHOKING [None]
  - THERAPEUTIC RESPONSE UNEXPECTED [None]
  - TARDIVE DYSKINESIA [None]
  - DYSPNOEA [None]
  - LOSS OF CONSCIOUSNESS [None]
